FAERS Safety Report 24313389 (Version 1)
Quarter: 2024Q3

REPORT INFORMATION
  Report Type: Report from Study
  Country: FR (occurrence: FR)
  Receive Date: 20240912
  Receipt Date: 20240912
  Transmission Date: 20241017
  Serious: Yes (Hospitalization, Other)
  Sender: PFIZER
  Company Number: FR-ABBVIE-5889362

PATIENT
  Age: 29 Year
  Sex: Female
  Weight: 52 kg

DRUGS (7)
  1. ADALIMUMAB [Suspect]
     Active Substance: ADALIMUMAB
     Indication: Crohn^s disease
     Dosage: UNK
     Route: 058
     Dates: start: 2011
  2. SKYRIZI [Suspect]
     Active Substance: RISANKIZUMAB-RZAA
     Indication: Crohn^s disease
     Dosage: UNK
     Route: 058
     Dates: start: 2021, end: 2022
  3. USTEKINUMAB [Concomitant]
     Active Substance: USTEKINUMAB
     Indication: Crohn^s disease
     Dosage: UNK
     Dates: start: 2017, end: 2020
  4. CERTOLIZUMAB PEGOL [Concomitant]
     Active Substance: CERTOLIZUMAB PEGOL
     Indication: Crohn^s disease
     Dosage: UNK
     Dates: start: 202109, end: 2021
  5. PREDNISOLONE [Concomitant]
     Active Substance: PREDNISOLONE
     Indication: Crohn^s disease
     Dosage: 40 MG, 1X/DAY
  6. INFLIXIMAB [Concomitant]
     Active Substance: INFLIXIMAB
     Indication: Crohn^s disease
     Dosage: UNK
     Dates: start: 2015
  7. VEDOLIZUMAB [Concomitant]
     Active Substance: VEDOLIZUMAB
     Indication: Crohn^s disease
     Dosage: UNK
     Dates: start: 2020

REACTIONS (19)
  - Vomiting [Unknown]
  - Abdominal pain [Unknown]
  - Abdominal abscess [Unknown]
  - Enterocolitis [Unknown]
  - Intestinal obstruction [Unknown]
  - Ileal ulcer [Not Recovered/Not Resolved]
  - Crohn^s disease [Unknown]
  - Crohn^s disease [Recovered/Resolved]
  - Anastomotic ulcer [Not Recovered/Not Resolved]
  - Large intestinal stenosis [Unknown]
  - Colitis [Unknown]
  - C-reactive protein increased [Unknown]
  - Drug intolerance [Unknown]
  - Drug ineffective [Unknown]
  - Inflammation [Unknown]
  - Diarrhoea [Unknown]
  - Stenosis [Unknown]
  - Inflammation [Not Recovered/Not Resolved]
  - Maternal exposure during pregnancy [Unknown]

NARRATIVE: CASE EVENT DATE: 20140101
